FAERS Safety Report 23896183 (Version 1)
Quarter: 2024Q2

REPORT INFORMATION
  Report Type: Spontaneous
  Country: US (occurrence: None)
  Receive Date: 20240523
  Receipt Date: 20240523
  Transmission Date: 20240716
  Serious: Yes (Hospitalization)
  Sender: FDA-Public Use
  Company Number: None

PATIENT
  Age: 27 Year
  Sex: Female

DRUGS (2)
  1. EPOPROSTENOL SODIUM [Suspect]
     Active Substance: EPOPROSTENOL SODIUM
     Indication: Pulmonary arterial hypertension
     Dosage: OTHER FREQUENCY : CONTINUOUS;?
     Route: 042
     Dates: start: 202402
  2. STERILE WATER SDV {SOML) [Concomitant]

REACTIONS (1)
  - Device related thrombosis [None]

NARRATIVE: CASE EVENT DATE: 20240516
